FAERS Safety Report 9717421 (Version 1)
Quarter: 2013Q4

REPORT INFORMATION
  Report Type: Spontaneous
  Country: US (occurrence: US)
  Receive Date: 20131127
  Receipt Date: 20131127
  Transmission Date: 20140711
  Serious: No
  Sender: FDA-Public Use
  Company Number: US-GILEAD-2008-0019662

PATIENT
  Sex: Male
  Weight: 95.25 kg

DRUGS (16)
  1. LETAIRIS [Suspect]
     Route: 048
     Dates: start: 20081211
  2. NORVASC [Concomitant]
  3. METOPROLOL [Concomitant]
  4. LISINOPRIL [Concomitant]
  5. LASIX [Concomitant]
  6. ALBUTEROL INHALER [Concomitant]
  7. ALBUTEROL NEB SOLUTION [Concomitant]
  8. MAXIAR AUTOHALER [Concomitant]
  9. SYMBICORT [Concomitant]
  10. FLOMAX [Concomitant]
  11. ASPIRIN [Concomitant]
  12. PREDNISONE [Concomitant]
  13. FACTIVE [Concomitant]
  14. AMBIEN [Concomitant]
  15. NEXIUM [Concomitant]
  16. POTASSIUM CHLORIDE [Concomitant]

REACTIONS (2)
  - Local swelling [Unknown]
  - Abdominal distension [Unknown]
